FAERS Safety Report 23207712 (Version 4)
Quarter: 2023Q4

REPORT INFORMATION
  Report Type: Report from Study
  Country: CH (occurrence: CH)
  Receive Date: 20231120
  Receipt Date: 20231204
  Transmission Date: 20240109
  Serious: Yes (Hospitalization)
  Sender: FDA-Public Use
  Company Number: CH-ABBVIE-5493805

PATIENT
  Sex: Female
  Weight: 67 kg

DRUGS (21)
  1. CARBIDOPA\LEVODOPA [Suspect]
     Active Substance: CARBIDOPA\LEVODOPA
     Indication: Parkinson^s disease
     Dosage: MD: 3.5 ML, CRD: 1.8 ML/H, ED: 0.5 ML?16H THERAPY
     Route: 050
     Dates: start: 20230630, end: 20230724
  2. CARBIDOPA\LEVODOPA [Suspect]
     Active Substance: CARBIDOPA\LEVODOPA
     Dosage: MD: 4.0 ML, CRD: 1.9 ML/H, ED: 1.0 ML?16H THERAPY
     Route: 050
     Dates: start: 20230428, end: 20230506
  3. CARBIDOPA\LEVODOPA [Suspect]
     Active Substance: CARBIDOPA\LEVODOPA
     Dosage: MD: 6.0 ML, CRD: 2.1 ML/H, ED: 1.0 ML?16H THERAPY
     Route: 050
     Dates: start: 20230506, end: 20230512
  4. CARBIDOPA\LEVODOPA [Suspect]
     Active Substance: CARBIDOPA\LEVODOPA
     Dosage: MD: 4.0 ML, CRD: 1.7 ML/H, ED: 1.0 ML?16H THERAPY
     Route: 050
     Dates: start: 20230413, end: 20230421
  5. CARBIDOPA\LEVODOPA [Suspect]
     Active Substance: CARBIDOPA\LEVODOPA
     Dosage: MD: 3.5 ML, CRD: 1.1 ML/H, ED: 0.5 ML?16H THERAPY
     Route: 050
     Dates: start: 20230316, end: 20230321
  6. CARBIDOPA\LEVODOPA [Suspect]
     Active Substance: CARBIDOPA\LEVODOPA
     Dosage: MD: 4.0 ML, CRD: 1.8 ML/H, ED: 1.0 ML?16H THERAPY
     Route: 050
     Dates: start: 20230421, end: 20230428
  7. CARBIDOPA\LEVODOPA [Suspect]
     Active Substance: CARBIDOPA\LEVODOPA
     Route: 050
     Dates: start: 20221103
  8. CARBIDOPA\LEVODOPA [Suspect]
     Active Substance: CARBIDOPA\LEVODOPA
     Dosage: MD: 3.5 ML, CRD: 1.5 ML/H, ED: 0.5 ML?16H THERAPY
     Route: 050
     Dates: start: 20230331, end: 20230404
  9. CARBIDOPA\LEVODOPA [Suspect]
     Active Substance: CARBIDOPA\LEVODOPA
     Dosage: MD: 3.5 ML, CRD: 1.3 ML/H, ED: 0.5 ML?16H THERAPY
     Route: 050
     Dates: start: 20230724, end: 20230830
  10. CARBIDOPA\LEVODOPA [Suspect]
     Active Substance: CARBIDOPA\LEVODOPA
     Dosage: MD: 3.5 ML, CRD: 1.7 ML/H, ED: 0.5 ML?16H THERAPY
     Route: 050
     Dates: start: 20230404, end: 20230413
  11. CARBIDOPA\LEVODOPA [Suspect]
     Active Substance: CARBIDOPA\LEVODOPA
     Dosage: MD: 6.0 ML, CRD: 1.8 ML/H, ED: 1.0 ML?16H THERAPY
     Route: 050
     Dates: start: 20230604, end: 20230630
  12. CARBIDOPA\LEVODOPA [Suspect]
     Active Substance: CARBIDOPA\LEVODOPA
     Dosage: MD: 3.5 ML, CRD: 1.3 ML/H, ED: 0.5 ML?16H THERAPY
     Route: 050
     Dates: start: 20230321, end: 20230331
  13. CARBIDOPA\LEVODOPA [Suspect]
     Active Substance: CARBIDOPA\LEVODOPA
     Dosage: MD: 3.0 ML, CRD: 1.0 ML/H, ED: 0.5 ML?16H THERAPY
     Route: 050
     Dates: start: 20230315, end: 20230316
  14. CARBIDOPA\LEVODOPA [Suspect]
     Active Substance: CARBIDOPA\LEVODOPA
     Dosage: MD: 6.0 ML, CRD: 2.3 ML/H, ED: 1.0 ML?16H THERAPY
     Route: 050
     Dates: start: 20230512, end: 20230515
  15. CARBIDOPA\LEVODOPA [Suspect]
     Active Substance: CARBIDOPA\LEVODOPA
     Dosage: MD: 3.5 ML, CRD: 1.1 ML/H, ED: 0.5 ML, AD: 1.2 ML?16H THERAPY
     Route: 050
     Dates: start: 20230830, end: 20231120
  16. CARBIDOPA\LEVODOPA [Suspect]
     Active Substance: CARBIDOPA\LEVODOPA
     Dosage: MD: 6.0 ML, CRD: 2.1 ML/H, ED: 1.0 ML, AD: 2.2 ML?16H THERAPY
     Route: 050
     Dates: start: 20230527, end: 20230604
  17. CARBIDOPA\LEVODOPA [Suspect]
     Active Substance: CARBIDOPA\LEVODOPA
     Dosage: MD: 6.0 ML, CRD: 2.1 ML/H, ED: 1.0 ML?16H THERAPY
     Route: 050
     Dates: start: 20230515, end: 20230527
  18. CARBIDOPA\LEVODOPA [Suspect]
     Active Substance: CARBIDOPA\LEVODOPA
     Dosage: MD: 3.5 ML, CRD: 0.5 ML/H, ED: 0.5 ML, 16H THERAPY
     Route: 050
     Dates: start: 20231120, end: 20231123
  19. CARBIDOPA\LEVODOPA [Suspect]
     Active Substance: CARBIDOPA\LEVODOPA
     Dosage: MD: 3.5 ML, CRD: 0.8 ML/H, ED: 0.5 ML,
     Route: 050
     Dates: start: 202311
  20. CARBIDOPA\LEVODOPA [Suspect]
     Active Substance: CARBIDOPA\LEVODOPA
     Dosage: MD: 3.5 ML, CRD: 0.8 ML/H, ED: 0.5 ML,?LAST ADMIN DATE: NOV 2023
     Route: 050
     Dates: start: 20231123
  21. BENSERAZIDE HYDROCHLORIDE\LEVODOPA [Concomitant]
     Active Substance: BENSERAZIDE HYDROCHLORIDE\LEVODOPA
     Indication: Product used for unknown indication

REACTIONS (13)
  - COVID-19 [Not Recovered/Not Resolved]
  - Malaise [Not Recovered/Not Resolved]
  - Dyskinesia [Not Recovered/Not Resolved]
  - Device issue [Unknown]
  - Wrong product administered [Unknown]
  - Dysphonia [Not Recovered/Not Resolved]
  - Cognitive disorder [Not Recovered/Not Resolved]
  - Emotional distress [Not Recovered/Not Resolved]
  - Disorientation [Not Recovered/Not Resolved]
  - Mobility decreased [Not Recovered/Not Resolved]
  - Muscular weakness [Not Recovered/Not Resolved]
  - Freezing phenomenon [Not Recovered/Not Resolved]
  - Motor dysfunction [Not Recovered/Not Resolved]

NARRATIVE: CASE EVENT DATE: 20230101
